FAERS Safety Report 13547520 (Version 1)
Quarter: 2017Q2

REPORT INFORMATION
  Report Type: Spontaneous
  Country: US (occurrence: US)
  Receive Date: 20170515
  Receipt Date: 20170515
  Transmission Date: 20170830
  Serious: No
  Sender: FDA-Public Use
  Company Number: US-009507513-1705USA005721

PATIENT
  Sex: Female
  Weight: 78.91 kg

DRUGS (3)
  1. FLUOXETINE [Concomitant]
     Active Substance: FLUOXETINE HYDROCHLORIDE
  2. METFORMIN [Concomitant]
     Active Substance: METFORMIN HYDROCHLORIDE
  3. NEXPLANON [Suspect]
     Active Substance: ETONOGESTREL
     Indication: CONTRACEPTION
     Dosage: DOSE/FREQUENCY: 3 YEAR IMPLANT/THERAPY ROUTE: IMPLANT IN LEFT ARM
     Route: 059
     Dates: start: 20170303

REACTIONS (4)
  - Photophobia [Not Recovered/Not Resolved]
  - Menorrhagia [Not Recovered/Not Resolved]
  - Headache [Unknown]
  - Menstruation normal [Recovered/Resolved]

NARRATIVE: CASE EVENT DATE: 2017
